FAERS Safety Report 9900318 (Version 1)
Quarter: 2014Q1

REPORT INFORMATION
  Report Type: Spontaneous
  Country: US (occurrence: US)
  Receive Date: 20140216
  Receipt Date: 20140216
  Transmission Date: 20141002
  Serious: No
  Sender: FDA-Public Use
  Company Number: US-009507513-1402USA005406

PATIENT
  Sex: Male

DRUGS (3)
  1. JANUVIA [Suspect]
     Route: 048
  2. METFORMIN [Concomitant]
     Dosage: UNK
  3. ACTOS [Concomitant]
     Dosage: UNK

REACTIONS (1)
  - Drug ineffective [Unknown]
